FAERS Safety Report 7236710-0 (Version None)
Quarter: 2011Q1

REPORT INFORMATION
  Report Type: 
  Country: None (occurrence: None)
  Receive Date: 20110120
  Receipt Date: 20110107
  Transmission Date: 20110831
  Serious: Yes (Disabling)
  Sender: FDA-Public Use
  Company Number: GB-MYLANLABS-2011S1000685

PATIENT
  Age: 86 Year
  Sex: Male
  Weight: 95 kg

DRUGS (7)
  1. VALSARTAN [Concomitant]
     Indication: PRODUCT USED FOR UNKNOWN INDICATION
  2. AMIODARONE HYDROCHLORIDE [Concomitant]
     Indication: PRODUCT USED FOR UNKNOWN INDICATION
  3. BENDROFLUMETHIAZIDE [Concomitant]
     Indication: PRODUCT USED FOR UNKNOWN INDICATION
  4. PRAVASTATIN SODIUM [Concomitant]
     Indication: PRODUCT USED FOR UNKNOWN INDICATION
  5. WARFARIN SODIUM [Concomitant]
     Indication: PRODUCT USED FOR UNKNOWN INDICATION
  6. TAMSULOSIN HYDROCHLORIDE [Suspect]
     Indication: PROSTATE CANCER
     Dates: start: 20101004, end: 20101226
  7. SENNA [Concomitant]
     Indication: PRODUCT USED FOR UNKNOWN INDICATION

REACTIONS (3)
  - ELECTROCARDIOGRAM QT PROLONGED [None]
  - ORTHOSTATIC HYPOTENSION [None]
  - SYNCOPE [None]
